FAERS Safety Report 10744640 (Version 1)
Quarter: 2015Q1

REPORT INFORMATION
  Report Type: Spontaneous
  Country: FR (occurrence: None)
  Receive Date: 20150126
  Receipt Date: 20150126
  Transmission Date: 20150721
  Serious: Yes (Death)
  Sender: FDA-Public Use
  Company Number: COR_00228_2015

PATIENT

DRUGS (5)
  1. GRANULOCYTE COLONY STIMULATING FACTOR [Concomitant]
     Active Substance: GRANULOCYTE COLONY-STIMULATING FACTOR NOS
  2. MESNA. [Concomitant]
     Active Substance: MESNA
  3. CISPLATIN (CISPLATIN) [Suspect]
     Active Substance: CISPLATIN
     Indication: SEMINOMA
     Dosage: [PER DAY FOR 5 DAYS; REPEATED EVERY 3 WEEKS; 4 CYCLES])
  4. IFOSFAMIDE (IFOSFAMIDE) [Suspect]
     Active Substance: IFOSFAMIDE
     Indication: SEMINOMA
     Dosage: [PER DAY FOR 5 DAYS; REPEATED EVERY 3 WEEKS; 4 CYCLES])
  5. ETOPOSIDE (ETOPOSIDE) [Suspect]
     Active Substance: ETOPOSIDE
     Indication: SEMINOMA
     Dosage: [PER DAY FOR 5 DAYS; REPEATED EVERY 3 WEEKS; 4 CYCLES])

REACTIONS (1)
  - Septic shock [None]
